FAERS Safety Report 5068156-8 (Version None)
Quarter: 2006Q3

REPORT INFORMATION
  Report Type: 
  Country: None (occurrence: None)
  Receive Date: 20060731
  Receipt Date: 20060720
  Transmission Date: 20061208
  Serious: No
  Sender: FDA-Public Use
  Company Number: 227723

PATIENT
  Age: 16 Year
  Sex: Male
  Weight: 72.9 kg

DRUGS (1)
  1. NUTROPIN AQ [Suspect]
     Indication: GROWTH HORMONE DEFICIENCY
     Dosage: 5 MG, 7/WEEK, SUBCUTANEOUS
     Route: 058
     Dates: start: 20021120

REACTIONS (1)
  - LIGAMENT RUPTURE [None]
